FAERS Safety Report 15275946 (Version 1)
Quarter: 2018Q3

REPORT INFORMATION
  Report Type: Spontaneous
  Country: IT (occurrence: IT)
  Receive Date: 20180814
  Receipt Date: 20180814
  Transmission Date: 20181010
  Serious: Yes (Other)
  Sender: FDA-Public Use
  Company Number: PHHY2018IT071799

PATIENT
  Age: 60 Year
  Sex: Female

DRUGS (2)
  1. TICLOPIDINE [Concomitant]
     Active Substance: TICLOPIDINE
     Indication: ANTIPLATELET THERAPY
     Dosage: 250 MG, BID, 500 MG, QD,STARTED 2H AFTER PROCEDURE
     Route: 065
  2. ACETYLSALICYLIC ACID [Suspect]
     Active Substance: ASPIRIN
     Indication: ANTIPLATELET THERAPY
     Dosage: 100 MG, QD
     Route: 065

REACTIONS (1)
  - Cerebral haematoma [Recovered/Resolved with Sequelae]
